FAERS Safety Report 6891261-8 (Version None)
Quarter: 2010Q3

REPORT INFORMATION
  Report Type: 
  Country: None (occurrence: None)
  Receive Date: 20100731
  Receipt Date: 20090714
  Transmission Date: 20110219
  Serious: No
  Sender: FDA-Public Use
  Company Number: US-PFIZER INC-2009205535

PATIENT
  Sex: Female
  Weight: 90.703 kg

DRUGS (6)
  1. LIPITOR [Suspect]
     Indication: BLOOD CHOLESTEROL ABNORMAL
     Dosage: 10 MG, 1X/DAY
  2. VYTORIN [Suspect]
     Dosage: UNK
  3. CRESTOR [Suspect]
     Dosage: UNK
     Dates: end: 20090101
  4. LISINOPRIL [Concomitant]
     Dosage: UNK
  5. METOPROLOL [Concomitant]
     Dosage: UNK
  6. SYNTHROID [Concomitant]
     Dosage: UNK

REACTIONS (6)
  - BACK PAIN [None]
  - BLOOD TRIGLYCERIDES INCREASED [None]
  - JAW DISORDER [None]
  - MUSCULOSKELETAL CHEST PAIN [None]
  - PAIN IN EXTREMITY [None]
  - PAIN IN JAW [None]
